FAERS Safety Report 21659728 (Version 9)
Quarter: 2024Q4

REPORT INFORMATION
  Report Type: Report from Study
  Country: US (occurrence: US)
  Receive Date: 20221129
  Receipt Date: 20241003
  Transmission Date: 20250115
  Serious: Yes (Hospitalization, Other)
  Sender: ABBVIE
  Company Number: US-ABBVIE-22K-163-4304968-00

PATIENT
  Age: 84 Year
  Sex: Male

DRUGS (5)
  1. IMBRUVICA [Suspect]
     Active Substance: IBRUTINIB
     Indication: Chronic lymphocytic leukaemia
     Route: 048
     Dates: start: 20200116, end: 20200116
  2. IMBRUVICA [Suspect]
     Active Substance: IBRUTINIB
     Indication: Chronic lymphocytic leukaemia
     Route: 048
     Dates: start: 20200116, end: 20220609
  3. IMBRUVICA [Suspect]
     Active Substance: IBRUTINIB
     Indication: Chronic lymphocytic leukaemia
     Route: 048
     Dates: start: 20220916
  4. IMBRUVICA [Suspect]
     Active Substance: IBRUTINIB
     Indication: Chronic lymphocytic leukaemia
     Route: 048
     Dates: start: 20220609, end: 20220916
  5. VANCOMYCIN HYDROCHLORIDE [Suspect]
     Active Substance: VANCOMYCIN HYDROCHLORIDE
     Indication: Urinary tract infection
     Route: 048

REACTIONS (30)
  - COVID-19 [Unknown]
  - Blister [Unknown]
  - Illness [Unknown]
  - Gastrointestinal pain [Unknown]
  - Brain fog [Unknown]
  - Cataract [Unknown]
  - Hallucination [Unknown]
  - Mental impairment [Unknown]
  - Renal function test abnormal [Unknown]
  - Urosepsis [Unknown]
  - Prostatomegaly [Unknown]
  - Renal failure [Unknown]
  - Pollakiuria [Unknown]
  - Poisoning [Unknown]
  - Pain in extremity [Unknown]
  - Fall [Unknown]
  - Asthenia [Unknown]
  - Skin exfoliation [Unknown]
  - Adverse drug reaction [Unknown]
  - Dysstasia [Unknown]
  - Mood altered [Not Recovered/Not Resolved]
  - Nephrolithiasis [Unknown]
  - Loss of consciousness [Unknown]
  - Skin disorder [Unknown]
  - Diarrhoea [Unknown]
  - Feeling abnormal [Unknown]
  - Abdominal pain lower [Unknown]
  - Constipation [Unknown]
  - Fatigue [Unknown]
  - Dyspnoea exertional [Unknown]

NARRATIVE: CASE EVENT DATE: 20240601
